FAERS Safety Report 7329144-1 (Version None)
Quarter: 2011Q1

REPORT INFORMATION
  Report Type: 
  Country: None (occurrence: None)
  Receive Date: 20110303
  Receipt Date: 20110223
  Transmission Date: 20110831
  Serious: Yes (Death)
  Sender: FDA-Public Use
  Company Number: JP-ALLERGAN-1102866US

PATIENT
  Age: 67 Year
  Sex: Female

DRUGS (4)
  1. LUMIGAN [Suspect]
     Indication: GLAUCOMA
     Dosage: 1 GTT, QD
     Route: 047
     Dates: start: 20100830
  2. SULPIRIDE [Concomitant]
     Dosage: UNK
     Dates: start: 20101001
  3. BROTIZOLAM [Concomitant]
     Dosage: UNK
     Dates: start: 20101001
  4. MOSAPRIDE CITRATE [Concomitant]
     Dosage: UNK
     Dates: start: 20101001

REACTIONS (1)
  - OESOPHAGEAL CARCINOMA [None]
